FAERS Safety Report 7556657-X (Version None)
Quarter: 2011Q2

REPORT INFORMATION
  Report Type: 
  Country: None (occurrence: None)
  Receive Date: 20110620
  Receipt Date: 20110610
  Transmission Date: 20111010
  Serious: Yes (Other)
  Sender: FDA-Public Use
  Company Number: PT-BRISTOL-MYERS SQUIBB COMPANY-15841125

PATIENT
  Age: 74 Year
  Sex: Female

DRUGS (9)
  1. METFORMIN HCL [Concomitant]
  2. PANTOPRAZOLE [Concomitant]
  3. BISOPROLOL FUMARATE [Concomitant]
  4. SIMVASTATIN [Concomitant]
  5. INDAPAMIDE [Concomitant]
  6. EPHEDRINE HYDROCHLORIDE [Concomitant]
     Dates: start: 20110520, end: 20110520
  7. MITOMYCIN [Suspect]
     Indication: EYE DISORDER
     Dosage: FORMULATION:INJ
     Route: 021
     Dates: start: 20110520, end: 20110520
  8. VILDAGLIPTIN [Concomitant]
  9. D-MANNITOL [Concomitant]
     Dates: start: 20110520, end: 20110520

REACTIONS (2)
  - OFF LABEL USE [None]
  - CORNEAL OEDEMA [None]
